FAERS Safety Report 13002977 (Version 2)
Quarter: 2017Q1

REPORT INFORMATION
  Report Type: Spontaneous
  Country: US (occurrence: US)
  Receive Date: 20161206
  Receipt Date: 20170124
  Transmission Date: 20170428
  Serious: No
  Sender: FDA-Public Use
  Company Number: US-JNJFOC-20161016332

PATIENT
  Sex: Male

DRUGS (15)
  1. LOVASTATIN. [Concomitant]
     Active Substance: LOVASTATIN
     Route: 048
  2. INVOKANA [Suspect]
     Active Substance: CANAGLIFLOZIN
     Indication: DIABETES MELLITUS
     Route: 048
     Dates: start: 20150911
  3. OMEGA-3 FATTY ACIDS [Concomitant]
     Active Substance: OMEGA-3 FATTY ACIDS
     Route: 048
  4. VITAMIN D3 [Concomitant]
     Active Substance: CHOLECALCIFEROL
     Dosage: 1000 UNITS
     Route: 048
  5. VITAMIN E-400 [Concomitant]
     Dosage: 400 UNITS
     Route: 048
  6. CINNAMON. [Concomitant]
     Active Substance: CINNAMON
     Route: 048
  7. ASPIRIN. [Concomitant]
     Active Substance: ASPIRIN
     Route: 048
  8. METFORMIN HCL [Concomitant]
     Active Substance: METFORMIN HYDROCHLORIDE
     Dosage: XR-24 TAB
     Route: 048
  9. VICTOZA [Concomitant]
     Active Substance: LIRAGLUTIDE
     Dosage: 18MG/3ML SOPN
     Route: 050
  10. MULTI VITAMINS + MINERALS [Concomitant]
     Route: 048
  11. VITAMIN B12 [Concomitant]
     Active Substance: CYANOCOBALAMIN
     Route: 048
  12. ACIDOPHILUS PROBIOTIC [Concomitant]
     Route: 048
  13. INVOKANA [Suspect]
     Active Substance: CANAGLIFLOZIN
     Indication: GLYCOSYLATED HAEMOGLOBIN
     Route: 048
     Dates: start: 20150911
  14. COREG [Concomitant]
     Active Substance: CARVEDILOL
     Route: 048
  15. DIGITEK [Concomitant]
     Active Substance: DIGOXIN
     Route: 048

REACTIONS (4)
  - Adverse event [Unknown]
  - Flatulence [Recovering/Resolving]
  - Nocturia [Recovering/Resolving]
  - Abdominal pain upper [Recovering/Resolving]
